FAERS Safety Report 5688392-7 (Version None)
Quarter: 2008Q1

REPORT INFORMATION
  Report Type: 
  Country: None (occurrence: None)
  Receive Date: 20080328
  Receipt Date: 20080328
  Transmission Date: 20080703
  Serious: Yes (Hospitalization)
  Sender: FDA-Public Use
  Company Number: None

PATIENT
  Age: 50 Year
  Sex: Female
  Weight: 79.3 kg

DRUGS (3)
  1. LAMOTRIGINE [Suspect]
     Dosage: 150 MG DAILY PO
     Route: 048
     Dates: start: 20080103, end: 20080114
  2. PREGABALIN   150 MG [Suspect]
     Dosage: 150 MG DAILY PO  (HOME MEDS -LONGER DURATIO)
     Route: 048
  3. ARIPIPRAZOLE [Suspect]
     Dosage: 25 MG DAILY PO  (HOME MEDS -LONGER DURATION)
     Route: 048

REACTIONS (5)
  - PYREXIA [None]
  - RENAL FAILURE ACUTE [None]
  - RHABDOMYOLYSIS [None]
  - TACHYCARDIA [None]
  - TACHYPNOEA [None]
